FAERS Safety Report 23974986 (Version 3)
Quarter: 2025Q1

REPORT INFORMATION
  Report Type: Spontaneous
  Country: US (occurrence: US)
  Receive Date: 20240614
  Receipt Date: 20250325
  Transmission Date: 20250408
  Serious: No
  Sender: GLAXOSMITHKLINE
  Company Number: US-GSK-US2024070684

PATIENT
  Age: 67 Year
  Sex: Male

DRUGS (2)
  1. NUCALA [Suspect]
     Active Substance: MEPOLIZUMAB
     Indication: Hypereosinophilic syndrome
     Route: 058
     Dates: start: 20240514
  2. METHYLPREDNISOLONE [Concomitant]
     Active Substance: METHYLPREDNISOLONE
     Indication: Product used for unknown indication

REACTIONS (6)
  - Adverse drug reaction [Unknown]
  - Rash [Recovering/Resolving]
  - Sleep deficit [Unknown]
  - Pruritus [Recovering/Resolving]
  - Product dose omission issue [Unknown]
  - Device dispensing error [Unknown]

NARRATIVE: CASE EVENT DATE: 20240516
